FAERS Safety Report 15622282 (Version 2)
Quarter: 2018Q4

REPORT INFORMATION
  Report Type: Spontaneous
  Country: US (occurrence: US)
  Receive Date: 20181115
  Receipt Date: 20181129
  Transmission Date: 20190205
  Serious: Yes (Other)
  Sender: FDA-Public Use
  Company Number: US-PFIZER INC-2018465472

PATIENT
  Age: 62 Year
  Sex: Female

DRUGS (1)
  1. ZIPRASIDONE HCL [Suspect]
     Active Substance: ZIPRASIDONE HYDROCHLORIDE
     Dosage: UNK

REACTIONS (4)
  - Jaw disorder [Unknown]
  - Bipolar disorder [Unknown]
  - Dyskinesia [Unknown]
  - Lip dry [Unknown]

NARRATIVE: CASE EVENT DATE: 2017
